FAERS Safety Report 15352017 (Version 1)
Quarter: 2018Q3

REPORT INFORMATION
  Report Type: Spontaneous
  Country: CA (occurrence: CA)
  Receive Date: 20180905
  Receipt Date: 20180905
  Transmission Date: 20181010
  Serious: Yes (Other)
  Sender: FDA-Public Use
  Company Number: CA-PFIZER INC-2018354018

PATIENT
  Age: 15 Month
  Sex: Female
  Weight: 7 kg

DRUGS (7)
  1. BOSENTAN. [Suspect]
     Active Substance: BOSENTAN
     Dosage: UNK
     Route: 065
  2. REMODULIN [Suspect]
     Active Substance: TREPROSTINIL
     Indication: PULMONARY HYPERTENSION
     Dosage: UNK, 1 EVERY 1 MINUTE
     Route: 058
  3. REMODULIN [Suspect]
     Active Substance: TREPROSTINIL
     Dosage: 0.105 UG/KG, 1 EVERY 1 MINUTE
     Route: 058
  4. REMODULIN [Suspect]
     Active Substance: TREPROSTINIL
     Dosage: 0.04 UG/KG, 1 EVERY 1 MINUTE
     Route: 058
  5. REMODULIN [Suspect]
     Active Substance: TREPROSTINIL
     Dosage: UNK
     Route: 041
  6. REMODULIN [Suspect]
     Active Substance: TREPROSTINIL
     Dosage: 0.1 UG/KG, 1 EVERY 1 MINUTE
     Route: 058
  7. SILDENAFIL CITRATE. [Suspect]
     Active Substance: SILDENAFIL CITRATE
     Dosage: UNK
     Route: 065

REACTIONS (10)
  - Flushing [Unknown]
  - Dry skin [Unknown]
  - Pruritus [Unknown]
  - Nausea [Unknown]
  - Oxygen saturation decreased [Unknown]
  - Vomiting [Unknown]
  - Oedema peripheral [Unknown]
  - Diarrhoea [Unknown]
  - Drug administered to patient of inappropriate age [Unknown]
  - Dizziness [Unknown]
